FAERS Safety Report 10025565 (Version 1)
Quarter: 2014Q1

REPORT INFORMATION
  Report Type: Spontaneous
  Country: US (occurrence: None)
  Receive Date: 20140304
  Receipt Date: 20140304
  Transmission Date: 20141002
  Serious: Yes (Other)
  Sender: FDA-Public Use
  Company Number: RB-61625-2013

PATIENT
  Sex: Female

DRUGS (1)
  1. SUBOXONE [Suspect]
     Indication: DRUG DEPENDENCE
     Dosage: DOSING REGIMEN UNKNOWN SUBLINGUAL
     Route: 060
     Dates: start: 2007, end: 2007

REACTIONS (2)
  - Anaphylactic shock [None]
  - Hypersensitivity [None]
